FAERS Safety Report 6414138-0 (Version None)
Quarter: 2009Q4

REPORT INFORMATION
  Report Type: 
  Country: None (occurrence: None)
  Receive Date: 20091022
  Receipt Date: 20091022
  Transmission Date: 20100525
  Serious: Yes (Hospitalization)
  Sender: FDA-Public Use
  Company Number: None

PATIENT
  Age: 78 Year
  Sex: Male

DRUGS (1)
  1. LOVENOX [Suspect]
     Dosage: Q12H SQ
     Route: 058

REACTIONS (9)
  - DEPRESSED LEVEL OF CONSCIOUSNESS [None]
  - EXCORIATION [None]
  - HEAD INJURY [None]
  - MENTAL STATUS CHANGES [None]
  - MYDRIASIS [None]
  - PUPIL FIXED [None]
  - ROAD TRAFFIC ACCIDENT [None]
  - SUBDURAL HAEMATOMA [None]
  - SYNCOPE [None]
